FAERS Safety Report 13702255 (Version 7)
Quarter: 2019Q1

REPORT INFORMATION
  Report Type: Report from Study
  Country: US (occurrence: US)
  Receive Date: 20170629
  Receipt Date: 20190125
  Transmission Date: 20190417
  Serious: No
  Sender: FDA-Public Use
  Company Number: PHEH2017US019969

PATIENT
  Age: 14 Year
  Sex: Female
  Weight: 53.3 kg

DRUGS (8)
  1. ILARIS [Suspect]
     Active Substance: CANAKINUMAB
     Indication: STILL^S DISEASE
     Dosage: 210 MG, EVERY 28 DAYS
     Route: 058
     Dates: start: 20160818
  2. METHOTREXATE. [Concomitant]
     Active Substance: METHOTREXATE
     Indication: STILL^S DISEASE
     Dosage: 15 MG, QW
     Route: 048
     Dates: start: 20160818
  3. ILARIS [Suspect]
     Active Substance: CANAKINUMAB
     Dosage: 210 MG, EVERY 28 DAYS
     Route: 058
     Dates: start: 20171116
  4. ILARIS [Suspect]
     Active Substance: CANAKINUMAB
     Dosage: 210 MG, EVERY 28 DAYS
     Route: 058
     Dates: start: 20171116
  5. FLUOXETINE [Concomitant]
     Active Substance: FLUOXETINE HYDROCHLORIDE
     Indication: ANXIETY
     Dosage: 10 MG, QD
     Route: 048
     Dates: start: 20180824
  6. ILARIS [Suspect]
     Active Substance: CANAKINUMAB
     Dosage: 210 MG, EVERY 28 DAYS
     Route: 058
     Dates: start: 20171116
  7. CHOLECALCIFEROL [Concomitant]
     Active Substance: CHOLECALCIFEROL
     Indication: VITAMIN D DEFICIENCY
     Dosage: 50000 U, QW
     Route: 048
     Dates: start: 201807
  8. CETRIZINE [Concomitant]
     Active Substance: CETIRIZINE HYDROCHLORIDE
     Indication: RHINITIS ALLERGIC
     Dosage: 10 MG, QD
     Route: 048

REACTIONS (9)
  - Pyrexia [Recovered/Resolved]
  - Upper respiratory tract infection [Recovered/Resolved]
  - Chest pain [Recovered/Resolved]
  - Inappropriate schedule of product administration [Not Recovered/Not Resolved]
  - Nasal discharge discolouration [Unknown]
  - Sinusitis [Recovered/Resolved]
  - Blood fibrinogen increased [Unknown]
  - Otitis media acute [Recovered/Resolved]
  - Rhinorrhoea [Recovered/Resolved]

NARRATIVE: CASE EVENT DATE: 20171113
